FAERS Safety Report 9121591 (Version 3)
Quarter: 2013Q3

REPORT INFORMATION
  Report Type: Spontaneous
  Country: JP (occurrence: JP)
  Receive Date: 20130227
  Receipt Date: 20130930
  Transmission Date: 20140515
  Serious: Yes (Hospitalization)
  Sender: FDA-Public Use
  Company Number: JP-009507513-1302JPN011098

PATIENT
  Age: 12 Year
  Sex: Female

DRUGS (8)
  1. BRIDION INTRAVENOUS 200MG [Suspect]
     Indication: NEUROMUSCULAR BLOCKADE REVERSAL
     Dosage: DAILY DOSE UNKNOWN
     Route: 042
     Dates: start: 20130208, end: 20130208
  2. ESLAX INTRAVENOUS 50MG/5.0ML [Suspect]
     Indication: NEUROMUSCULAR BLOCKADE
     Dosage: DAILY DOSE UNKNOWN
     Route: 042
     Dates: start: 20130208, end: 20130208
  3. SEVOFLURANE [Suspect]
     Dosage: DAILY DOSAGE UNKNOWN
     Route: 042
     Dates: start: 20130208, end: 20130208
  4. CITOSOL [Suspect]
     Dosage: DAILY DOSE UNKNOWN
     Route: 042
     Dates: start: 20130208, end: 20130208
  5. FENTANYL [Suspect]
     Dosage: DAILY DOSE UNKNOWN
     Route: 042
     Dates: start: 20130208, end: 20130208
  6. NEOSYNESIN [Suspect]
     Dosage: DAILY DOSE UNKNOWN
     Route: 042
     Dates: start: 20130208, end: 20130208
  7. LIDOCAINE [Suspect]
     Dosage: DAILY DOSE UNKNOWN
     Route: 042
     Dates: start: 20130208, end: 20130208
  8. TEGRETOL [Concomitant]
     Dosage: DAILY DOSE UNKNOWN
     Route: 048
     Dates: start: 2011, end: 20130209

REACTIONS (1)
  - Liver disorder [Recovering/Resolving]
